FAERS Safety Report 7818418-3 (Version None)
Quarter: 2011Q4

REPORT INFORMATION
  Report Type: 
  Country: None (occurrence: None)
  Receive Date: 20111017
  Receipt Date: 20111007
  Transmission Date: 20120403
  Serious: Yes (Other)
  Sender: FDA-Public Use
  Company Number: GB-ASTRAZENECA-2011SE49814

PATIENT
  Age: 23870 Day
  Sex: Male
  Weight: 74.4 kg

DRUGS (10)
  1. GABAPENTIN [Concomitant]
  2. CITALOPRAM [Concomitant]
     Indication: ANXIETY
     Route: 048
  3. MOVIPREP [Concomitant]
  4. ACETAMINOPHEN [Concomitant]
  5. CODEINE SULFATE [Concomitant]
  6. DICLOFENAC [Suspect]
     Indication: ARTHRITIS
     Route: 048
     Dates: start: 20090801, end: 20110810
  7. NORTRIPTYLINE HCL [Concomitant]
  8. OMEPRAZOLE [Suspect]
     Indication: DYSPEPSIA
     Route: 048
     Dates: start: 20090801, end: 20110810
  9. FYBOGEL [Concomitant]
  10. OMEPRAZOLE [Suspect]
     Indication: PROPHYLAXIS AGAINST GASTROINTESTINAL ULCER
     Route: 048
     Dates: start: 20090801, end: 20110810

REACTIONS (2)
  - VITAMIN B12 DECREASED [None]
  - BLOOD COUNT ABNORMAL [None]
